FAERS Safety Report 4990509-4 (Version None)
Quarter: 2006Q2

REPORT INFORMATION
  Report Type: 
  Country: None (occurrence: None)
  Receive Date: 20060427
  Receipt Date: 20060418
  Transmission Date: 20061013
  Serious: Yes (Hospitalization, Other)
  Sender: FDA-Public Use
  Company Number: 2006047330

PATIENT
  Sex: Female

DRUGS (9)
  1. ALDACTONE [Suspect]
     Indication: CARDIAC FAILURE CONGESTIVE
  2. CAPTOPRIL [Concomitant]
  3. STOOL SOFTENER (DOCUSATE SODIUM) [Concomitant]
  4. METOCLOPRAMIDE [Concomitant]
  5. METFORMIN [Concomitant]
  6. COUMADIN [Concomitant]
  7. NEURONTIN [Concomitant]
  8. CALCIUM (CALCIUM) [Concomitant]
  9. INSULIN [Concomitant]

REACTIONS (10)
  - BRONCHITIS [None]
  - DIABETES MELLITUS [None]
  - DRUG INEFFECTIVE [None]
  - FLUID RETENTION [None]
  - GASTROENTERITIS [None]
  - GOUT [None]
  - HYPERKALAEMIA [None]
  - INTESTINAL SPASM [None]
  - OBESITY [None]
  - PNEUMONIA [None]
